FAERS Safety Report 14773115 (Version 1)
Quarter: 2018Q2

REPORT INFORMATION
  Report Type: Spontaneous
  Country: DE (occurrence: DE)
  Receive Date: 20180418
  Receipt Date: 20180418
  Transmission Date: 20180711
  Serious: Yes (Life-Threatening, Other)
  Sender: FDA-Public Use
  Company Number: DE-TORRENT-00008075

PATIENT
  Age: 9 Year
  Sex: Female

DRUGS (7)
  1. TRIHEXYPHENIDYL HYDROCHLORIDE. [Suspect]
     Active Substance: TRIHEXYPHENIDYL HYDROCHLORIDE
     Indication: HYPERKINESIA
     Dosage: UNKNOWN
  2. TETRABENAZINE. [Suspect]
     Active Substance: TETRABENAZINE
     Indication: HYPERKINESIA
     Dosage: UNKNOWN
  3. PHENOBARBITAL. [Suspect]
     Active Substance: PHENOBARBITAL
     Indication: HYPERKINESIA
     Dosage: UNKNOWN
  4. HALOPERIDOL. [Suspect]
     Active Substance: HALOPERIDOL
     Indication: HYPERKINESIA
     Dosage: UNKNOWN
  5. ACETAZOLAMID [Suspect]
     Active Substance: ACETAZOLAMIDE
     Indication: HYPERKINESIA
     Dosage: UNKNOWN
  6. VALPROIC ACID. [Suspect]
     Active Substance: VALPROIC ACID
     Indication: HYPERKINESIA
     Dosage: UNKNOWN
  7. TOPIRAMATE. [Suspect]
     Active Substance: TOPIRAMATE
     Indication: HYPERKINESIA
     Dosage: UNKNOWN

REACTIONS (2)
  - Drug ineffective [Unknown]
  - Off label use [Unknown]
